FAERS Safety Report 17437538 (Version 1)
Quarter: 2020Q1

REPORT INFORMATION
  Report Type: Spontaneous
  Country: FR (occurrence: FR)
  Receive Date: 20200219
  Receipt Date: 20200219
  Transmission Date: 20200409
  Serious: Yes (Hospitalization)
  Sender: FDA-Public Use
  Company Number: FR-BAUSCH-BL-2020-004663

PATIENT
  Age: 86 Year
  Sex: Female

DRUGS (2)
  1. CLOXACILLINE [Suspect]
     Active Substance: CLOXACILLIN
     Indication: STAPHYLOCOCCAL BACTERAEMIA
     Route: 042
     Dates: start: 20180829, end: 20180920
  2. GENTAMICINE [Suspect]
     Active Substance: GENTAMICIN
     Indication: STAPHYLOCOCCAL BACTERAEMIA
     Route: 042
     Dates: start: 20180829, end: 20180903

REACTIONS (2)
  - Acute kidney injury [Recovered/Resolved]
  - Tubulointerstitial nephritis [Recovered/Resolved]

NARRATIVE: CASE EVENT DATE: 201809
